FAERS Safety Report 24083532 (Version 1)
Quarter: 2024Q3

REPORT INFORMATION
  Report Type: Report from Study
  Country: KR (occurrence: KR)
  Receive Date: 20240712
  Receipt Date: 20240712
  Transmission Date: 20241017
  Serious: Yes (Other)
  Sender: Unknown Manufacturer
  Company Number: KR-ROCHE-3036838

PATIENT

DRUGS (7)
  1. PRALSETINIB [Suspect]
     Active Substance: PRALSETINIB
     Indication: Non-small cell lung cancer
     Dosage: 400 MILLIGRAM, QD
     Route: 048
     Dates: start: 20211027, end: 20220105
  2. PRALSETINIB [Suspect]
     Active Substance: PRALSETINIB
     Dosage: 200 MILLIGRAM, QD
     Route: 048
     Dates: start: 20220223
  3. PRALSETINIB [Suspect]
     Active Substance: PRALSETINIB
     Dosage: 300 MILLIGRAM, QD
     Route: 048
     Dates: start: 20220106, end: 20220209
  4. FAMOTIDINE [Concomitant]
     Active Substance: FAMOTIDINE
     Indication: Abdominal discomfort
     Dosage: 10 MG, 1 IN 1 AS NECESSARY)
     Route: 048
     Dates: start: 20211116
  5. IBUPROFEN [Concomitant]
     Active Substance: IBUPROFEN
     Indication: Nasopharyngitis
     Dosage: 400 MG, 1 IN 1 AS NECESSARY
     Route: 048
     Dates: start: 20211116
  6. SYNATURA [Concomitant]
     Indication: Cough
     Dosage: 100ML 1PKG, 1 IN 1 AS NECESSARY
     Route: 048
     Dates: start: 20211116
  7. AMLODIPINE [Concomitant]
     Active Substance: AMLODIPINE BESYLATE
     Indication: Hypertension
     Dosage: 5 MG 1T, 1 IN 1 DAY
     Route: 048
     Dates: start: 20211124

REACTIONS (8)
  - Neutropenia [Recovered/Resolved]
  - Pneumonitis [Not Recovered/Not Resolved]
  - Anaemia [Not Recovered/Not Resolved]
  - Alanine aminotransferase increased [Recovered/Resolved]
  - Aspartate aminotransferase increased [Recovered/Resolved]
  - Face oedema [Not Recovered/Not Resolved]
  - COVID-19 [Recovered/Resolved]
  - Abdominal distension [Recovered/Resolved]

NARRATIVE: CASE EVENT DATE: 20220103
